FAERS Safety Report 5149273-0 (Version None)
Quarter: 2006Q4

REPORT INFORMATION
  Report Type: 
  Country: None (occurrence: None)
  Receive Date: 20061113
  Receipt Date: 20051020
  Transmission Date: 20070319
  Serious: No
  Sender: FDA-Public Use
  Company Number: 422258

PATIENT
  Age: 62 Year
  Sex: Male

DRUGS (10)
  1. COREG [Suspect]
     Dosage: 12.5MG TWICE PER DAY
     Route: 048
     Dates: start: 20000101
  2. FUROSEMIDE [Concomitant]
  3. TRICOR [Concomitant]
  4. DIGOXIN [Concomitant]
  5. PROTONIX [Concomitant]
  6. LISINOPRIL [Concomitant]
  7. AMIODARONE HCL [Concomitant]
  8. CRESTOR [Concomitant]
  9. ALLOPURINOL [Concomitant]
  10. ASPIRIN [Concomitant]

REACTIONS (1)
  - ABNORMAL DREAMS [None]
